FAERS Safety Report 4879261-0 (Version None)
Quarter: 2006Q1

REPORT INFORMATION
  Report Type: 
  Country: None (occurrence: None)
  Receive Date: 20060112
  Receipt Date: 20050615
  Transmission Date: 20060701
  Serious: Yes (Hospitalization, Disabling)
  Sender: FDA-Public Use
  Company Number: US-MERCK-0506USA02429

PATIENT
  Age: 66 Year
  Sex: Male
  Weight: 86 kg

DRUGS (2)
  1. VIOXX [Suspect]
     Route: 048
     Dates: start: 20010426, end: 20040106
  2. TENORMIN [Suspect]
     Indication: HYPERTENSION
     Route: 048
     Dates: start: 19750101

REACTIONS (35)
  - ABDOMINAL PAIN [None]
  - ARTERIOSCLEROSIS [None]
  - ARTERIOSCLEROSIS CORONARY ARTERY [None]
  - ATELECTASIS [None]
  - BACK PAIN [None]
  - BLOOD TRIGLYCERIDES INCREASED [None]
  - CARDIAC DISORDER [None]
  - CEREBRAL ISCHAEMIA [None]
  - CHEST PAIN [None]
  - CHOLECYSTITIS ACUTE [None]
  - CHOLELITHIASIS [None]
  - CORONARY ARTERY OCCLUSION [None]
  - CORONARY ARTERY STENOSIS [None]
  - DEPRESSION [None]
  - DYSPNOEA [None]
  - EPIGASTRIC DISCOMFORT [None]
  - ERUCTATION [None]
  - FALL [None]
  - GASTRIC VARICES [None]
  - GASTRITIS [None]
  - GASTROOESOPHAGEAL REFLUX DISEASE [None]
  - HEPATITIS A [None]
  - HYPERCHOLESTEROLAEMIA [None]
  - NAUSEA [None]
  - NON-CARDIAC CHEST PAIN [None]
  - OEDEMA [None]
  - OESOPHAGITIS [None]
  - PARKINSON'S DISEASE [None]
  - PORTAL HYPERTENSION [None]
  - RENAL CYST [None]
  - RIB FRACTURE [None]
  - SINUS BRADYCARDIA [None]
  - SINUS TACHYCARDIA [None]
  - SYNCOPE [None]
  - VENTRICULAR EXTRASYSTOLES [None]
